FAERS Safety Report 6393863-4 (Version None)
Quarter: 2009Q4

REPORT INFORMATION
  Report Type: 
  Country: None (occurrence: None)
  Receive Date: 20091008
  Receipt Date: 20091005
  Transmission Date: 20100525
  Serious: Yes (Other)
  Sender: FDA-Public Use
  Company Number: NL-WYE-G04575209

PATIENT
  Sex: Female

DRUGS (2)
  1. ADVIL [Suspect]
     Indication: ABDOMINAL PAIN
     Dosage: UNKNOWN
     Route: 048
     Dates: start: 20090101, end: 20090101
  2. FEMARA [Concomitant]
     Dosage: UNKNOWN

REACTIONS (5)
  - ABDOMINAL PAIN [None]
  - BLOOD URINE PRESENT [None]
  - BREAST CANCER RECURRENT [None]
  - CONDITION AGGRAVATED [None]
  - INFECTION [None]
